FAERS Safety Report 5266455-8 (Version None)
Quarter: 2007Q1

REPORT INFORMATION
  Report Type: 
  Country: None (occurrence: None)
  Receive Date: 20070315
  Receipt Date: 20070306
  Transmission Date: 20070707
  Serious: Yes (Hospitalization)
  Sender: FDA-Public Use
  Company Number: HQWYE996107MAR07

PATIENT
  Sex: Female
  Weight: 56.75 kg

DRUGS (1)
  1. INDERAL [Suspect]
     Indication: ARRHYTHMIA
     Route: 048
     Dates: end: 20070226

REACTIONS (7)
  - ABDOMINAL PAIN UPPER [None]
  - ATRIAL FIBRILLATION [None]
  - CARDIAC FLUTTER [None]
  - CHEST PAIN [None]
  - DRUG WITHDRAWAL SYNDROME [None]
  - TREMOR [None]
  - VISION BLURRED [None]
